FAERS Safety Report 21918334 (Version 2)
Quarter: 2023Q1

REPORT INFORMATION
  Report Type: Report from Study
  Country: JP (occurrence: JP)
  Receive Date: 20230127
  Receipt Date: 20230208
  Transmission Date: 20230418
  Serious: Yes (Hospitalization)
  Sender: FDA-Public Use
  Company Number: JP-CHUGAI-2023001860

PATIENT
  Age: 71 Year
  Sex: Male
  Weight: 57.4 kg

DRUGS (7)
  1. ATEZOLIZUMAB [Suspect]
     Active Substance: ATEZOLIZUMAB
     Indication: Thymic carcinoma
     Dosage: 1200 MILLIGRAM, ONCE/3WEEKS
     Route: 042
     Dates: start: 20230106
  2. CARBOPLATIN [Suspect]
     Active Substance: CARBOPLATIN
     Indication: Thymic carcinoma
     Dosage: 709 MILLIGRAM, ONCE/3WEEKS
     Route: 042
     Dates: start: 20230106
  3. PACLITAXEL [Suspect]
     Active Substance: PACLITAXEL
     Indication: Thymic carcinoma
     Dosage: 330 MILLIGRAM, ONCE/3WEEKS
     Route: 042
     Dates: start: 20230106
  4. ACETAMINOPHEN [Concomitant]
     Active Substance: ACETAMINOPHEN
     Indication: Cancer pain
     Dosage: 200 MILLIGRAM, TID
     Route: 048
     Dates: start: 20221113
  5. MAGNESIUM OXIDE [Concomitant]
     Active Substance: MAGNESIUM OXIDE
     Indication: Constipation
     Dosage: 330 MILLIGRAM, TID
     Route: 048
     Dates: start: 20230111
  6. FILGRASTIM [Concomitant]
     Active Substance: FILGRASTIM
     Indication: Neutrophil count decreased
     Dosage: 75 MICROGRAM, QD
     Route: 058
     Dates: start: 20230116
  7. LEVOFLOXACIN HEMIHYDRATE [Concomitant]
     Active Substance: LEVOFLOXACIN
     Indication: Infection prophylaxis
     Dosage: 500 MILLIGRAM, QD
     Route: 048
     Dates: start: 20230116, end: 20230116

REACTIONS (1)
  - Febrile neutropenia [Recovered/Resolved]

NARRATIVE: CASE EVENT DATE: 20230117
